FAERS Safety Report 5373774-3 (Version None)
Quarter: 2007Q2

REPORT INFORMATION
  Report Type: 
  Country: None (occurrence: None)
  Receive Date: 20070615
  Receipt Date: 20070306
  Transmission Date: 20071010
  Serious: Yes (Life-Threatening, Hospitalization)
  Sender: FDA-Public Use
  Company Number: 200710348US

PATIENT
  Age: 51 Year
  Sex: Female
  Weight: 86.8 kg

DRUGS (14)
  1. LANTUS [Suspect]
     Indication: DIABETES MELLITUS
     Dosage: 34 U QD SC
     Route: 058
     Dates: start: 20060907
  2. LANTUS [Suspect]
     Indication: DIABETES MELLITUS
     Dosage: 36 U QD SC
     Route: 058
  3. AVANDIA [Suspect]
     Indication: DIABETES MELLITUS
     Dosage: 8 MG QD PO
     Route: 048
     Dates: start: 20040219
  4. AVANDIA [Suspect]
     Dosage: 4 MG QD
     Dates: start: 20060707
  5. METFORMIN HYDROCHLORIDE [Suspect]
     Indication: DIABETES MELLITUS
     Dosage: 2500 MG/DAY PO
     Route: 048
     Dates: start: 20031103
  6. GLYBURIDE [Suspect]
     Indication: DIABETES MELLITUS
     Dosage: 5 MG BID PO
     Route: 048
     Dates: start: 20040219, end: 20070107
  7. AMBIEN [Concomitant]
  8. ATORVASTATIN CALCIUM (LIPITOR) [Concomitant]
  9. PREVACID [Concomitant]
  10. FOSAMAX [Concomitant]
  11. PREGABLIN (LYRICA) [Concomitant]
  12. BONIVA [Concomitant]
  13. INSULIN GLARGINE (APIDRA) [Concomitant]
  14. SIMVASTATIN [Concomitant]

REACTIONS (3)
  - ALTERED STATE OF CONSCIOUSNESS [None]
  - HYPERHIDROSIS [None]
  - HYPOGLYCAEMIA [None]
